FAERS Safety Report 7118104-1 (Version None)
Quarter: 2010Q4

REPORT INFORMATION
  Report Type: 
  Country: None (occurrence: None)
  Receive Date: 20101123
  Receipt Date: 20101111
  Transmission Date: 20110411
  Serious: No
  Sender: FDA-Public Use
  Company Number: US-PFIZER INC-2010150495

PATIENT

DRUGS (1)
  1. XALATAN [Suspect]

REACTIONS (2)
  - CONTACT LENS INTOLERANCE [None]
  - DRY EYE [None]
